FAERS Safety Report 9169866 (Version 3)
Quarter: 2013Q2

REPORT INFORMATION
  Report Type: Spontaneous
  Country: JP (occurrence: JP)
  Receive Date: 20130319
  Receipt Date: 20130611
  Transmission Date: 20140414
  Serious: Yes (Hospitalization)
  Sender: FDA-Public Use
  Company Number: JP-009507513-1303JPN007785

PATIENT
  Age: 50 Year
  Sex: Male
  Weight: 57 kg

DRUGS (5)
  1. PEGINTRON [Suspect]
     Indication: CHRONIC HEPATITIS C
     Dosage: 1.5 MICROGRAM PER KILOGRAM, QW
     Route: 058
     Dates: start: 20130204, end: 20130304
  2. REBETOL [Suspect]
     Indication: CHRONIC HEPATITIS C
     Dosage: 800 MG, QD
     Route: 048
     Dates: start: 20130204, end: 20130304
  3. TELAVIC [Suspect]
     Indication: CHRONIC HEPATITIS C
     Dosage: 1.5 G, QD
     Route: 048
     Dates: start: 20130204, end: 20130304
  4. AMARYL [Concomitant]
     Dosage: 1 MG, QD
     Route: 048
  5. ZYLORIC [Concomitant]
     Dosage: 2 DF, QD
     Route: 048
     Dates: start: 20130211, end: 20130304

REACTIONS (1)
  - Stevens-Johnson syndrome [Recovering/Resolving]
